FAERS Safety Report 9844275 (Version 1)
Quarter: 2014Q1

REPORT INFORMATION
  Report Type: Spontaneous
  Country: IN (occurrence: IN)
  Receive Date: 20140127
  Receipt Date: 20140127
  Transmission Date: 20141002
  Serious: Yes (Other)
  Sender: FDA-Public Use
  Company Number: IN-009507513-1401IND010820

PATIENT
  Sex: 0

DRUGS (1)
  1. JANUMET [Suspect]
     Dosage: 1 DF,QD

REACTIONS (3)
  - Bile duct obstruction [Unknown]
  - Biliary tract operation [Unknown]
  - Post procedural infection [Not Recovered/Not Resolved]
